FAERS Safety Report 9241248 (Version 2)
Quarter: 2013Q3

REPORT INFORMATION
  Report Type: Spontaneous
  Country: US (occurrence: US)
  Receive Date: 20130419
  Receipt Date: 20130911
  Transmission Date: 20140515
  Serious: No
  Sender: FDA-Public Use
  Company Number: US-BIOGENIDEC-2013BI033851

PATIENT
  Sex: Male

DRUGS (1)
  1. TYSABRI [Suspect]
     Indication: MULTIPLE SCLEROSIS
     Route: 042
     Dates: start: 20120412

REACTIONS (8)
  - Medical device complication [Recovered/Resolved]
  - Blepharospasm [Recovered/Resolved]
  - Underdose [Recovered/Resolved]
  - Muscle twitching [Recovered/Resolved]
  - Somnolence [Recovered/Resolved]
  - Hangover [Recovered/Resolved]
  - Multiple sclerosis relapse [Recovered/Resolved]
  - Infusion site bruising [Recovered/Resolved]
